FAERS Safety Report 5325328-2 (Version None)
Quarter: 2007Q2

REPORT INFORMATION
  Report Type: 
  Country: None (occurrence: None)
  Receive Date: 20070515
  Receipt Date: 20070425
  Transmission Date: 20071010
  Serious: Yes (Hospitalization)
  Sender: FDA-Public Use
  Company Number: JP-ASTRAZENECA-2006AP06206

PATIENT
  Age: 21931 Day
  Sex: Male
  Weight: 68.7 kg

DRUGS (5)
  1. CRESTOR [Suspect]
     Indication: HYPERLIPIDAEMIA
     Route: 048
     Dates: start: 20061219
  2. ASPIRIN [Concomitant]
     Indication: THROMBOSIS PROPHYLAXIS
     Route: 048
     Dates: start: 20061128
  3. ITOROL [Concomitant]
     Indication: ANGINA UNSTABLE
     Route: 048
     Dates: start: 20061129, end: 20070107
  4. METOPROLOL TARTRATE [Concomitant]
     Indication: ANGINA UNSTABLE
     Route: 048
     Dates: start: 20061129
  5. PLAVIX [Concomitant]
     Indication: THROMBOSIS PROPHYLAXIS
     Route: 048
     Dates: start: 20061213

REACTIONS (1)
  - PYREXIA [None]
